FAERS Safety Report 23107548 (Version 6)
Quarter: 2024Q3

REPORT INFORMATION
  Report Type: Spontaneous
  Country: JP (occurrence: JP)
  Receive Date: 20231026
  Receipt Date: 20240813
  Transmission Date: 20241017
  Serious: Yes (Other)
  Sender: GLAXOSMITHKLINE
  Company Number: None

PATIENT

DRUGS (2)
  1. MEPOLIZUMAB [Suspect]
     Active Substance: MEPOLIZUMAB
     Indication: Eosinophilic granulomatosis with polyangiitis
     Dosage: UNK, RESUMED IN 2023
  2. DUPIXENT [Concomitant]
     Active Substance: DUPILUMAB
     Indication: Nasal disorder
     Dosage: UNK

REACTIONS (5)
  - Epiglottitis [Unknown]
  - Laryngeal granuloma [Unknown]
  - Eosinophil count increased [Unknown]
  - Therapeutic response decreased [Unknown]
  - Drug ineffective [Unknown]
